FAERS Safety Report 15133976 (Version 6)
Quarter: 2019Q1

REPORT INFORMATION
  Report Type: Spontaneous
  Country: GB (occurrence: GB)
  Receive Date: 20180712
  Receipt Date: 20190205
  Transmission Date: 20190417
  Serious: Yes (Other)
  Sender: FDA-Public Use
  Company Number: GB-MYLANLABS-2018M1051748

PATIENT
  Age: 58 Year
  Sex: Male

DRUGS (1)
  1. CLOZARIL [Suspect]
     Active Substance: CLOZAPINE
     Indication: SCHIZOPHRENIA
     Dosage: UNK
     Route: 048
     Dates: start: 20031106, end: 20190112

REACTIONS (6)
  - Thrombocytopenia [Recovering/Resolving]
  - Hepatic cirrhosis [Unknown]
  - White blood cell count decreased [Recovered/Resolved]
  - Splenomegaly [Unknown]
  - Liver disorder [Unknown]
  - Liver function test abnormal [Unknown]

NARRATIVE: CASE EVENT DATE: 20181231
